FAERS Safety Report 7525401-4 (Version None)
Quarter: 2011Q2

REPORT INFORMATION
  Report Type: 
  Country: None (occurrence: None)
  Receive Date: 20110606
  Receipt Date: 20110526
  Transmission Date: 20111010
  Serious: Yes (Life-Threatening)
  Sender: FDA-Public Use
  Company Number: JP-ROCHE-765560

PATIENT
  Sex: Female
  Weight: 56 kg

DRUGS (4)
  1. CISPLATIN [Concomitant]
     Dates: start: 20110311
  2. XELODA [Suspect]
     Indication: BREAST CANCER
     Dosage: NOTE: DOSAGE IS UNCERTAIN. DRUG NAME REPORTED AS XELODA 300
     Route: 048
     Dates: start: 20110215, end: 20110301
  3. HERCEPTIN [Concomitant]
  4. XELODA [Suspect]
     Dosage: FREQUENCY:UNKNOWN,FIRST COURSE COMPLETED AFTER 2 WEEK ADMINISTRATION.
     Route: 048
     Dates: start: 20110311

REACTIONS (1)
  - STEVENS-JOHNSON SYNDROME [None]
